APPROVED DRUG PRODUCT: PREGABALIN
Active Ingredient: PREGABALIN
Strength: 200MG
Dosage Form/Route: CAPSULE;ORAL
Application: A206452 | Product #006
Applicant: CADILA PHARMACEUTICALS LTD
Approved: Jul 12, 2023 | RLD: No | RS: No | Type: DISCN